FAERS Safety Report 15967013 (Version 1)
Quarter: 2019Q1

REPORT INFORMATION
  Report Type: Spontaneous
  Country: FR (occurrence: FR)
  Receive Date: 20190215
  Receipt Date: 20190215
  Transmission Date: 20190418
  Serious: Yes (Other)
  Sender: FDA-Public Use
  Company Number: FR-MYLANLABS-2019M1012940

PATIENT
  Sex: Female

DRUGS (1)
  1. VALSARTAN. [Suspect]
     Active Substance: VALSARTAN
     Indication: HYPONATRAEMIA
     Dosage: UNK
     Route: 065
     Dates: start: 20170928

REACTIONS (2)
  - Demyelination [Unknown]
  - Concomitant disease aggravated [Unknown]
